FAERS Safety Report 9617748 (Version 1)
Quarter: 2013Q4

REPORT INFORMATION
  Report Type: Spontaneous
  Country: DE (occurrence: DE)
  Receive Date: 20131011
  Receipt Date: 20131011
  Transmission Date: 20140711
  Serious: Yes (Other)
  Sender: FDA-Public Use
  Company Number: GXKR2013DE003241

PATIENT
  Age: 78 Year
  Sex: Male

DRUGS (1)
  1. THIAMAZOL HEXAL [Suspect]
     Dosage: 2.5 MG, ONCE/SINGLE
     Route: 048

REACTIONS (3)
  - Syncope [Unknown]
  - Blood pressure increased [Unknown]
  - Nausea [Unknown]
